FAERS Safety Report 6788775-8 (Version None)
Quarter: 2010Q2

REPORT INFORMATION
  Report Type: 
  Country: None (occurrence: None)
  Receive Date: 20100623
  Receipt Date: 20080502
  Transmission Date: 20101027
  Serious: No
  Sender: FDA-Public Use
  Company Number: US-PFIZER INC-2008039429

PATIENT
  Sex: Female

DRUGS (2)
  1. AROMASIN [Suspect]
     Indication: BREAST CANCER
     Dates: start: 20080401
  2. TAMOXIFEN [Concomitant]
     Dates: end: 20080101

REACTIONS (1)
  - ALOPECIA [None]
